FAERS Safety Report 13853907 (Version 1)
Quarter: 2017Q3

REPORT INFORMATION
  Report Type: Spontaneous
  Country: CZ (occurrence: CZ)
  Receive Date: 20170810
  Receipt Date: 20170810
  Transmission Date: 20171127
  Serious: Yes (Hospitalization)
  Sender: FDA-Public Use
  Company Number: CZ-BAUSCH-BL-2017-023454

PATIENT
  Age: 22 Year
  Sex: Male

DRUGS (5)
  1. BISULEPIN HYDROCHLORIDE [Suspect]
     Active Substance: BISULEPIN HYDROCHLORIDE
     Route: 065
  2. CEFZIL [Suspect]
     Active Substance: CEFPROZIL
     Indication: ACUTE SINUSITIS
     Route: 048
     Dates: start: 2014, end: 2014
  3. PREDNISONE. [Suspect]
     Active Substance: PREDNISONE
     Indication: HYPERSENSITIVITY
     Route: 065
  4. HYDROCORTISONE. [Suspect]
     Active Substance: HYDROCORTISONE
     Indication: PRODUCT USED FOR UNKNOWN INDICATION
     Dosage: 100 MILLIGRAM
     Route: 030
     Dates: start: 2014
  5. BISULEPIN HYDROCHLORIDE [Suspect]
     Active Substance: BISULEPIN HYDROCHLORIDE
     Indication: HYPERSENSITIVITY
     Dosage: 1 AMPULE
     Route: 030

REACTIONS (1)
  - Drug reaction with eosinophilia and systemic symptoms [Not Recovered/Not Resolved]

NARRATIVE: CASE EVENT DATE: 2014
